FAERS Safety Report 19416048 (Version 1)
Quarter: 2021Q2

REPORT INFORMATION
  Report Type: Spontaneous
  Country: US (occurrence: US)
  Receive Date: 20210614
  Receipt Date: 20210614
  Transmission Date: 20210717
  Serious: Yes (Other)
  Sender: FDA-Public Use
  Company Number: US-ELI_LILLY_AND_COMPANY-US202106001195

PATIENT
  Age: 50 Year
  Sex: Female

DRUGS (3)
  1. INSULIN LISPRO [Suspect]
     Active Substance: INSULIN LISPRO
     Indication: PRODUCT USED FOR UNKNOWN INDICATION
     Dosage: UNK UNK, UNKNOWN
     Route: 065
     Dates: start: 20210531
  2. NOVOLOG [Concomitant]
     Active Substance: INSULIN ASPART
     Indication: PRODUCT USED FOR UNKNOWN INDICATION
  3. HUMALOG [Suspect]
     Active Substance: INSULIN LISPRO
     Indication: PRODUCT USED FOR UNKNOWN INDICATION
     Dosage: UNK UNK, PRN (300 UNITS A DAY, SOMETIMES LESS THAN 300 UNITS A DAY, BASED ON CARBS INTAKE)
     Route: 065

REACTIONS (13)
  - Diabetes mellitus inadequate control [Unknown]
  - Somnolence [Unknown]
  - Glycosylated haemoglobin increased [Unknown]
  - Vision blurred [Unknown]
  - Feeling abnormal [Unknown]
  - Blood glucose increased [Unknown]
  - Cataract [Unknown]
  - Thinking abnormal [Unknown]
  - Glycosylated haemoglobin increased [Unknown]
  - Glycosylated haemoglobin increased [Unknown]
  - Illness [Unknown]
  - Malaise [Unknown]
  - Wrong product administered [Unknown]

NARRATIVE: CASE EVENT DATE: 201712
